FAERS Safety Report 23346693 (Version 4)
Quarter: 2024Q2

REPORT INFORMATION
  Report Type: Report from Study
  Country: CN (occurrence: CN)
  Receive Date: 20231228
  Receipt Date: 20240425
  Transmission Date: 20240715
  Serious: Yes (Hospitalization, Other)
  Sender: FDA-Public Use
  Company Number: CN-Eisai-EC-2023-155872

PATIENT
  Age: 71 Year
  Sex: Male
  Weight: 47 kg

DRUGS (13)
  1. LENVATINIB [Suspect]
     Active Substance: LENVATINIB
     Indication: Hepatocellular carcinoma
     Route: 048
     Dates: start: 20221027, end: 20221225
  2. LENVATINIB [Suspect]
     Active Substance: LENVATINIB
     Route: 048
     Dates: start: 20230104, end: 20230108
  3. LENVATINIB [Suspect]
     Active Substance: LENVATINIB
     Route: 048
     Dates: start: 20230113, end: 20230117
  4. LENVATINIB [Suspect]
     Active Substance: LENVATINIB
     Route: 048
     Dates: start: 20230214, end: 20230504
  5. TORIPALIMAB [Suspect]
     Active Substance: TORIPALIMAB
     Indication: Hepatocellular carcinoma
     Dosage: JS001/PLACEBO
     Route: 042
     Dates: start: 20221027, end: 20221215
  6. TORIPALIMAB [Suspect]
     Active Substance: TORIPALIMAB
     Dosage: JS001/PLACEBO
     Route: 042
     Dates: start: 20230214, end: 20230419
  7. EBASTINE [Concomitant]
     Active Substance: EBASTINE
     Indication: Dermatitis
     Route: 048
     Dates: start: 20230401, end: 20230426
  8. TRIAMCINOLONE ACETONIDE AND ECONAZOLE NITRATE [Concomitant]
     Indication: Eczema
     Dates: start: 20230401, end: 20230426
  9. CETIRIZINE HYDROCHLORIDE [Concomitant]
     Active Substance: CETIRIZINE HYDROCHLORIDE
     Indication: Eczema
     Route: 048
     Dates: start: 20230401, end: 20230426
  10. Recombinant  Bovine  Basic  Fibroblast Growth Factor Eye-Gel [Concomitant]
     Indication: Cataract
     Dates: start: 20230407, end: 20230504
  11. METFORMIN HYDROCHLORIDE [Concomitant]
     Active Substance: METFORMIN HYDROCHLORIDE
     Indication: Diabetes mellitus
     Route: 048
     Dates: start: 2012, end: 202303
  12. ACARBOSE [Concomitant]
     Active Substance: ACARBOSE
     Indication: Diabetes mellitus
     Route: 048
     Dates: start: 2012, end: 202303
  13. GLIMEPIRIDE [Concomitant]
     Active Substance: GLIMEPIRIDE
     Indication: Diabetes mellitus
     Route: 048
     Dates: start: 2012, end: 202303

REACTIONS (2)
  - Hepatic function abnormal [Recovered/Resolved]
  - Hypoalbuminaemia [Recovered/Resolved]

NARRATIVE: CASE EVENT DATE: 20230105
